FAERS Safety Report 7929586-7 (Version None)
Quarter: 2011Q4

REPORT INFORMATION
  Report Type: 
  Country: None (occurrence: None)
  Receive Date: 20111116
  Receipt Date: 20111028
  Transmission Date: 20120403
  Serious: Yes (Life-Threatening)
  Sender: FDA-Public Use
  Company Number: 1088974

PATIENT
  Age: 58 Year
  Sex: Female

DRUGS (1)
  1. PACLITAXEL [Suspect]
     Indication: OVARIAN CANCER
     Dosage: 280 MG, TOTAL, INTRAVENOUS (NOT OTHERWISE SPECIFIED)
     Route: 042
     Dates: start: 20111025, end: 20111025

REACTIONS (11)
  - LARYNGEAL OEDEMA [None]
  - HYPERTENSIVE CRISIS [None]
  - ERYTHEMA [None]
  - DYSPHONIA [None]
  - VOMITING [None]
  - RHINITIS [None]
  - HYPERHIDROSIS [None]
  - OROPHARYNGEAL PAIN [None]
  - ABDOMINAL PAIN UPPER [None]
  - NAUSEA [None]
  - PARAESTHESIA [None]
